FAERS Safety Report 4389289-5 (Version None)
Quarter: 2004Q2

REPORT INFORMATION
  Report Type: 
  Country: None (occurrence: None)
  Receive Date: 20040624
  Receipt Date: 20040611
  Transmission Date: 20050107
  Serious: Yes (Death)
  Sender: FDA-Public Use
  Company Number: 2004IM000693

PATIENT
  Age: 71 Year
  Sex: Male

DRUGS (1)
  1. ACTIMMUNE [Suspect]
     Indication: INTERSTITIAL LUNG DISEASE
     Dosage: SUBCUTANEOUS
     Route: 058
     Dates: end: 20021129

REACTIONS (1)
  - RESPIRATORY FAILURE [None]
